FAERS Safety Report 7718184-6 (Version None)
Quarter: 2011Q3

REPORT INFORMATION
  Report Type: 
  Country: None (occurrence: None)
  Receive Date: 20110830
  Receipt Date: 20110817
  Transmission Date: 20111222
  Serious: Yes (Other)
  Sender: FDA-Public Use
  Company Number: PHHY2011BR74304

PATIENT
  Sex: Male
  Weight: 20 kg

DRUGS (6)
  1. CEPHALEXIN [Concomitant]
     Dosage: 5 ML, Q6H
     Route: 048
  2. ALLEGRA [Concomitant]
     Dosage: 60 ML, UNK
  3. CEPHALEXIN [Concomitant]
     Indication: BLISTER
     Dosage: 5 ML, EVERY 8 HOURS
     Route: 048
     Dates: start: 20110601
  4. RITALIN [Suspect]
     Indication: ATTENTION DEFICIT/HYPERACTIVITY DISORDER
     Dosage: 1 DF, DAILY,AT 12:50 PM
     Route: 048
     Dates: start: 20110501
  5. BUDESONIDE [Concomitant]
  6. SODIUM CHLORIDE [Concomitant]
     Dosage: 50 ML, UNK

REACTIONS (3)
  - CELLULITIS [None]
  - BLISTER [None]
  - BLOOD BLISTER [None]
